FAERS Safety Report 10559712 (Version 1)
Quarter: 2014Q4

REPORT INFORMATION
  Report Type: Spontaneous
  Country: US (occurrence: US)
  Receive Date: 20141103
  Receipt Date: 20141103
  Transmission Date: 20150529
  Serious: Yes (Death)
  Sender: FDA-Public Use
  Company Number: US-PFIZER INC-2014300055

PATIENT
  Age: 87 Year
  Sex: Male

DRUGS (1)
  1. BOSULIF [Suspect]
     Active Substance: BOSUTINIB MONOHYDRATE
     Indication: CHRONIC MYELOID LEUKAEMIA
     Dosage: 100 MG, UNK (3 TABLETS ALTERNATING WITH 2 TABLETS EVERY OTHER DAY)
     Route: 048
     Dates: start: 20140517

REACTIONS (2)
  - Chronic myeloid leukaemia [Fatal]
  - Disease progression [Fatal]

NARRATIVE: CASE EVENT DATE: 20141017
